FAERS Safety Report 17272512 (Version 1)
Quarter: 2020Q1

REPORT INFORMATION
  Report Type: Spontaneous
  Country: US (occurrence: US)
  Receive Date: 20191223
  Receipt Date: 20191223
  Transmission Date: 20200409
  Serious: Yes (Hospitalization)
  Sender: FDA-Public Use
  Company Number: None

PATIENT
  Sex: Male
  Weight: 99 kg

DRUGS (1)
  1. DEXAMETHASONE. [Suspect]
     Active Substance: DEXAMETHASONE
     Dates: start: 20191213, end: 20191218

REACTIONS (4)
  - White blood cell count increased [None]
  - Pulmonary embolism [None]
  - Pyrexia [None]
  - Dizziness [None]

NARRATIVE: CASE EVENT DATE: 20191218
